FAERS Safety Report 15088115 (Version 2)
Quarter: 2018Q3

REPORT INFORMATION
  Report Type: Spontaneous
  Country: US (occurrence: US)
  Receive Date: 20180629
  Receipt Date: 20180910
  Transmission Date: 20181010
  Serious: Yes (Other)
  Sender: FDA-Public Use
  Company Number: US-009507513-1806USA009348

PATIENT
  Age: 65 Year
  Sex: Male

DRUGS (6)
  1. VALTREX [Concomitant]
     Active Substance: VALACYCLOVIR HYDROCHLORIDE
     Dosage: UNK
  2. DEPO?TESTOSTERONE [Concomitant]
     Active Substance: TESTOSTERONE CYPIONATE
     Dosage: UNK
  3. MYRBETRIQ [Concomitant]
     Active Substance: MIRABEGRON
     Dosage: UNK
  4. TICE BCG [Suspect]
     Active Substance: BACILLUS CALMETTE-GUERIN SUBSTRAIN TICE LIVE ANTIGEN
     Indication: TRANSITIONAL CELL CARCINOMA
     Dosage: UNK
     Route: 043
  5. LEVOTHYROXINE SODIUM. [Concomitant]
     Active Substance: LEVOTHYROXINE SODIUM
     Dosage: UNK
  6. TRAMADOL HYDROCHLORIDE. [Concomitant]
     Active Substance: TRAMADOL HYDROCHLORIDE
     Dosage: UNK

REACTIONS (1)
  - Bladder transitional cell carcinoma recurrent [Not Recovered/Not Resolved]
